FAERS Safety Report 8302543-7 (Version None)
Quarter: 2012Q2

REPORT INFORMATION
  Report Type: 
  Country: None (occurrence: None)
  Receive Date: 20120420
  Receipt Date: 20120417
  Transmission Date: 20120825
  Serious: Yes (Death, Other)
  Sender: FDA-Public Use
  Company Number: CN-ROCHE-1060887

PATIENT
  Age: 88 Year
  Sex: Male

DRUGS (1)
  1. MABTHERA [Suspect]
     Indication: ACQUIRED HAEMOPHILIA

REACTIONS (2)
  - DEATH [None]
  - INFECTION [None]
